FAERS Safety Report 9602979 (Version 5)
Quarter: 2014Q1

REPORT INFORMATION
  Report Type: Report from Study
  Country: DE (occurrence: DE)
  Receive Date: 20131007
  Receipt Date: 20140220
  Transmission Date: 20141002
  Serious: Yes (Death, Hospitalization)
  Sender: FDA-Public Use
  Company Number: DE-TEVA-436373USA

PATIENT
  Age: 79 Year
  Sex: Male
  Weight: 65 kg

DRUGS (4)
  1. BENDAMUSTINE [Suspect]
     Indication: PRODUCT USED FOR UNKNOWN INDICATION
     Dates: start: 201303
  2. BENDAMUSTINE [Suspect]
     Dosage: UNKNOWN/D
     Dates: start: 201304, end: 20130510
  3. RITUXIMAB [Suspect]
     Indication: PRODUCT USED FOR UNKNOWN INDICATION
     Dosage: UNKNOWN/D
     Dates: start: 201303
  4. RITUXIMAB [Suspect]
     Dosage: UNKNOWN/D
     Dates: start: 201304, end: 20130510

REACTIONS (2)
  - Haemolysis [Not Recovered/Not Resolved]
  - Pneumonia [Fatal]
